FAERS Safety Report 14237963 (Version 1)
Quarter: 2017Q4

REPORT INFORMATION
  Report Type: Spontaneous
  Country: US (occurrence: US)
  Receive Date: 20171130
  Receipt Date: 20171130
  Transmission Date: 20180321
  Serious: Yes (Hospitalization, Other)
  Sender: FDA-Public Use
  Company Number: US-BEH-2017085344

PATIENT
  Sex: Male
  Weight: 65.76 kg

DRUGS (18)
  1. VIMPAT [Concomitant]
     Active Substance: LACOSAMIDE
  2. PROBIOTIC                          /06395501/ [Concomitant]
     Active Substance: BIFIDOBACTERIUM ANIMALIS LACTIS
  3. LEVOCARNITINE. [Concomitant]
     Active Substance: LEVOCARNITINE
  4. DEPAKOTE [Concomitant]
     Active Substance: DIVALPROEX SODIUM
  5. LEVALBUTEROL. [Concomitant]
     Active Substance: LEVALBUTEROL
  6. CLONIDINE. [Concomitant]
     Active Substance: CLONIDINE
  7. SLOW-MAG [Concomitant]
     Active Substance: MAGNESIUM CHLORIDE
  8. HIZENTRA [Suspect]
     Active Substance: HUMAN IMMUNOGLOBULIN G
     Dosage: UNK
     Route: 058
  9. HIZENTRA [Suspect]
     Active Substance: HUMAN IMMUNOGLOBULIN G
     Indication: IMMUNODEFICIENCY COMMON VARIABLE
     Dosage: 5 MG, QW
     Route: 058
     Dates: start: 20130313
  10. HIZENTRA [Suspect]
     Active Substance: HUMAN IMMUNOGLOBULIN G
     Dosage: UNK
     Route: 058
  11. PULMICORT TURBUHALER [Concomitant]
     Active Substance: BUDESONIDE
  12. TRANXENE T-TAB [Concomitant]
     Active Substance: CLORAZEPATE DIPOTASSIUM
  13. LISINOPRIL + HIDROCLOROTIAZIDA [Concomitant]
     Active Substance: HYDROCHLOROTHIAZIDE\LISINOPRIL
  14. BROVANA [Concomitant]
     Active Substance: ARFORMOTEROL TARTRATE
  15. SINGULAIR [Concomitant]
     Active Substance: MONTELUKAST SODIUM
  16. FELBATOL [Concomitant]
     Active Substance: FELBAMATE
  17. ZYRTEC [Concomitant]
     Active Substance: CETIRIZINE HYDROCHLORIDE
  18. BETHANECHOL [Concomitant]
     Active Substance: BETHANECHOL

REACTIONS (1)
  - Pneumonia [Unknown]

NARRATIVE: CASE EVENT DATE: 2017
